FAERS Safety Report 10658514 (Version 2)
Quarter: 2015Q1

REPORT INFORMATION
  Report Type: Report from Study
  Country: EG (occurrence: EG)
  Receive Date: 20141217
  Receipt Date: 20150202
  Transmission Date: 20150720
  Serious: Yes (Death, Other)
  Sender: FDA-Public Use
  Company Number: EG-SA-2014SA171356

PATIENT
  Age: 59 Year
  Sex: Male

DRUGS (1)
  1. LANTUS [Suspect]
     Active Substance: INSULIN GLARGINE
     Indication: TYPE 2 DIABETES MELLITUS
     Route: 058
     Dates: start: 20131028

REACTIONS (2)
  - Angina pectoris [Unknown]
  - Liver disorder [Fatal]

NARRATIVE: CASE EVENT DATE: 201403
